FAERS Safety Report 21639585 (Version 2)
Quarter: 2024Q1

REPORT INFORMATION
  Report Type: Spontaneous
  Country: JP (occurrence: None)
  Receive Date: 20221124
  Receipt Date: 20240320
  Transmission Date: 20240410
  Serious: Yes (Hospitalization)
  Sender: FDA-Public Use
  Company Number: 2022A382525

PATIENT
  Age: 79 Year
  Weight: 40 kg

DRUGS (8)
  1. TAGRISSO [Suspect]
     Active Substance: OSIMERTINIB
     Indication: Non-small cell lung cancer
     Route: 048
     Dates: start: 20220822, end: 20221010
  2. AMITIZA [Concomitant]
     Active Substance: LUBIPROSTONE
     Indication: Constipation
     Route: 048
  3. CYMBALTA [Concomitant]
     Active Substance: DULOXETINE HYDROCHLORIDE
     Indication: Depression
     Route: 048
  4. SULPIRIDE [Concomitant]
     Active Substance: SULPIRIDE
     Indication: Depression
     Route: 048
  5. PURSENNID [Concomitant]
     Indication: Constipation
     Route: 048
  6. MAGNESIUM OXIDE [Concomitant]
     Active Substance: MAGNESIUM OXIDE
     Indication: Constipation
     Route: 048
  7. ALOSENN [Concomitant]
     Indication: Constipation
     Route: 048
  8. CALCIUM POLYCARBOPHIL [Concomitant]
     Active Substance: CALCIUM POLYCARBOPHIL
     Indication: Constipation
     Route: 048

REACTIONS (3)
  - Interstitial lung disease [Recovered/Resolved]
  - Lymphangiosis carcinomatosa [Unknown]
  - Malignant pleural effusion [Recovered/Resolved]

NARRATIVE: CASE EVENT DATE: 20220902
